FAERS Safety Report 21921202 (Version 7)
Quarter: 2023Q1

REPORT INFORMATION
  Report Type: Report from Study
  Country: TR (occurrence: None)
  Receive Date: 20230127
  Receipt Date: 20230302
  Transmission Date: 20230418
  Serious: Yes (Death, Hospitalization)
  Sender: FDA-Public Use
  Company Number: TR-ROCHE-3270661

PATIENT
  Age: 59 Year
  Sex: Female
  Weight: 76 kg

DRUGS (20)
  1. ATEZOLIZUMAB [Suspect]
     Active Substance: ATEZOLIZUMAB
     Indication: Small cell lung cancer extensive stage
     Dosage: START DATE OF MOST RECENT DOSE OF STUDY DRUG PRIOR TO AE 15/DEC/2022
     Route: 041
     Dates: start: 20220818
  2. LURBINECTEDIN [Suspect]
     Active Substance: LURBINECTEDIN
     Indication: Small cell lung cancer extensive stage
     Dosage: START DATE OF MOST RECENT DOSE OF STUDY DRUG PRIOR TO AE: 15-DEC-2022
     Route: 042
     Dates: start: 20221115
  3. ETOPOSIDE [Suspect]
     Active Substance: ETOPOSIDE
     Indication: Small cell lung cancer extensive stage
     Dosage: START DATE OF MOST RECENT DOSE OF STUDY DRUG PRIOR TO AE: 20-OCT-2022
     Route: 042
     Dates: start: 20220818
  4. CARBOPLATIN [Suspect]
     Active Substance: CARBOPLATIN
     Indication: Small cell lung cancer extensive stage
     Dosage: START DATE OF MOST RECENT DOSE OF STUDY DRUG PRIOR TO AE: 18/OCT/2022
     Route: 042
     Dates: start: 20220818
  5. ATACAND [Concomitant]
     Active Substance: CANDESARTAN CILEXETIL
     Indication: Hypertension
     Route: 058
     Dates: start: 1991
  6. ASPIRIN [Concomitant]
     Active Substance: ASPIRIN
     Dates: start: 201901
  7. PANTO (TURKEY) [Concomitant]
     Indication: Pneumonia
     Dates: start: 20220712
  8. PANTO (TURKEY) [Concomitant]
     Indication: Prophylaxis
  9. PHENIRAMINE [Concomitant]
     Active Substance: PHENIRAMINE
     Dates: start: 20220818
  10. EMETRIL [Concomitant]
     Indication: Nausea
     Dates: start: 20220818
  11. EMETRIL [Concomitant]
     Indication: Vomiting
  12. DEKORT [Concomitant]
     Active Substance: DEXAMETHASONE
     Route: 042
     Dates: start: 20220818
  13. GRANITRON [Concomitant]
     Indication: Nausea
     Dates: start: 20220818
  14. GRANITRON [Concomitant]
     Indication: Vomiting
  15. FRAVEN [Concomitant]
     Indication: Leukopenia
     Dosage: DOSE : 48 OTHER
     Route: 058
     Dates: start: 20220822
  16. TYGEX [Concomitant]
     Dates: start: 20230119, end: 20230126
  17. METHYLPREDNISOLONE [Concomitant]
     Active Substance: METHYLPREDNISOLONE
     Indication: Platelet count decreased
     Route: 048
     Dates: start: 20221217
  18. METHYLPREDNISOLONE [Concomitant]
     Active Substance: METHYLPREDNISOLONE
     Indication: Aspartate aminotransferase increased
  19. METHYLPREDNISOLONE [Concomitant]
     Active Substance: METHYLPREDNISOLONE
     Indication: Alanine aminotransferase increased
  20. PAROL [Concomitant]
     Active Substance: ACETAMINOPHEN
     Dates: start: 20230119, end: 20230119

REACTIONS (2)
  - C-reactive protein increased [Fatal]
  - Thrombocytopenia [Fatal]

NARRATIVE: CASE EVENT DATE: 20230119
